FAERS Safety Report 14969333 (Version 1)
Quarter: 2018Q2

REPORT INFORMATION
  Report Type: Report from Study
  Country: BR (occurrence: BR)
  Receive Date: 20180604
  Receipt Date: 20180604
  Transmission Date: 20180711
  Serious: Yes (Death, Other)
  Sender: FDA-Public Use
  Company Number: BR-ACTELION-A-CH2018-173274

PATIENT
  Age: 15 Year
  Sex: Male
  Weight: 35 kg

DRUGS (1)
  1. ZAVESCA [Suspect]
     Active Substance: MIGLUSTAT
     Indication: NIEMANN-PICK DISEASE
     Dosage: 200 MG, BID
     Route: 048

REACTIONS (3)
  - Death [Fatal]
  - Arthralgia [Unknown]
  - Joint dislocation [Unknown]

NARRATIVE: CASE EVENT DATE: 20180219
